FAERS Safety Report 8832538 (Version 1)
Quarter: 2012Q4

REPORT INFORMATION
  Report Type: 
  Country: US (occurrence: US)
  Receive Date: 20121010
  Receipt Date: 20121010
  Transmission Date: 20130627
  Serious: No
  Sender: FDA-Public Use
  Company Number: US-BAYER-2012-105783

PATIENT
  Sex: Female
  Weight: 72 kg

DRUGS (9)
  1. BETASERON [Suspect]
     Indication: MULTIPLE SCLEROSIS
     Dosage: 0.25 mg, QOD
     Route: 058
  2. NEURONTIN [Concomitant]
     Dosage: 100 mg, UNK
  3. CLONAZEPAM [Concomitant]
     Dosage: 0.5 mg, UNK
  4. LISINOPRIL [Concomitant]
     Dosage: 2.5 mg, UNK
  5. BACLOFEN [Concomitant]
     Dosage: 10 mg, UNK
  6. LEVOTHYROXINE [Concomitant]
     Dosage: 25 ?g, UNK
  7. MECLIZINE [Concomitant]
     Dosage: 12.5 mg, UNK
  8. PROZAC [Concomitant]
     Dosage: 10 mg, UNK
  9. CALCIUM +VIT D [Concomitant]

REACTIONS (3)
  - Influenza like illness [Unknown]
  - Diplopia [Unknown]
  - Hypoaesthesia [Unknown]
